FAERS Safety Report 8132168-8 (Version None)
Quarter: 2012Q1

REPORT INFORMATION
  Report Type: 
  Country: None (occurrence: None)
  Receive Date: 20120213
  Receipt Date: 20120209
  Transmission Date: 20120608
  Serious: Yes (Other)
  Sender: FDA-Public Use
  Company Number: GB-TEVA-321654ISR

PATIENT
  Age: 27 Year
  Sex: Male

DRUGS (4)
  1. CLOZARIL [Suspect]
     Indication: SCHIZOPHRENIA
     Dosage: 200 MG, UNK
     Route: 048
     Dates: start: 20051122
  2. RISPERIDONE [Suspect]
     Dosage: 2+8
     Dates: start: 20070101
  3. RISPERIDONE [Suspect]
     Dosage: 8 MG, UNK
     Route: 048
  4. CLOZARIL [Suspect]
     Route: 048
     Dates: start: 20070101

REACTIONS (3)
  - ANXIETY [None]
  - OBSESSIVE-COMPULSIVE DISORDER [None]
  - ANTIPSYCHOTIC DRUG LEVEL BELOW THERAPEUTIC [None]
